FAERS Safety Report 9966988 (Version 5)
Quarter: 2014Q2

REPORT INFORMATION
  Report Type: Spontaneous
  Country: FR (occurrence: FR)
  Receive Date: 20140305
  Receipt Date: 20140624
  Transmission Date: 20141212
  Serious: Yes (Hospitalization, Disabling)
  Sender: FDA-Public Use
  Company Number: FR-US-EMD SERONO, INC.-7250913

PATIENT
  Age: 34 Year
  Sex: Female
  Weight: 69 kg

DRUGS (9)
  1. REBIF [Suspect]
     Indication: MULTIPLE SCLEROSIS
     Route: 058
     Dates: start: 20021007
  2. REBIF [Suspect]
     Route: 058
     Dates: end: 2012
  3. REBIF [Suspect]
     Dates: start: 201210, end: 20131114
  4. LYRICA [Concomitant]
     Indication: MULTIPLE SCLEROSIS
     Dates: start: 2008
  5. RIVOTRIL [Concomitant]
     Indication: MULTIPLE SCLEROSIS
     Dosage: 10 DROPS DAILY
     Dates: start: 2012
  6. TRAMADOL [Concomitant]
     Indication: MULTIPLE SCLEROSIS
     Dates: start: 2013
  7. LIORESAL [Concomitant]
     Indication: MULTIPLE SCLEROSIS
     Dates: start: 2002
  8. MIOREL [Concomitant]
     Indication: MULTIPLE SCLEROSIS
     Dates: start: 2002
  9. GINKOR FORT [Concomitant]
     Indication: PRODUCT USED FOR UNKNOWN INDICATION

REACTIONS (16)
  - Injection site necrosis [Recovered/Resolved with Sequelae]
  - Lymphoedema [Recovering/Resolving]
  - Injection site plaque [Not Recovered/Not Resolved]
  - Injection site inflammation [Recovered/Resolved with Sequelae]
  - Injection site mass [Recovering/Resolving]
  - Multiple sclerosis relapse [Unknown]
  - Localised infection [Unknown]
  - Blood triglycerides increased [Unknown]
  - Tendonitis [Unknown]
  - Injection site abscess [Recovering/Resolving]
  - Injection site pain [Unknown]
  - Fatigue [Unknown]
  - Influenza like illness [Unknown]
  - Injection site induration [Recovering/Resolving]
  - Alanine aminotransferase increased [Unknown]
  - Headache [Unknown]
